FAERS Safety Report 16680238 (Version 2)
Quarter: 2019Q4

REPORT INFORMATION
  Report Type: Report from Study
  Country: CA (occurrence: CA)
  Receive Date: 20190807
  Receipt Date: 20191002
  Transmission Date: 20200122
  Serious: Yes (Hospitalization)
  Sender: FDA-Public Use
  Company Number: CA-HLSUS-2019-CA-000864

PATIENT
  Age: 65 Year
  Sex: Male
  Weight: 82 kg

DRUGS (10)
  1. LAMOTRIGINE. [Concomitant]
     Active Substance: LAMOTRIGINE
     Dosage: 200MG QHS
     Route: 048
  2. HALDOL [Concomitant]
     Active Substance: HALOPERIDOL
     Dosage: 75 MG Q 21 DAYS
     Route: 030
  3. TAMSULOSIN [Concomitant]
     Active Substance: TAMSULOSIN
  4. ENOXAPARIN [Concomitant]
     Active Substance: ENOXAPARIN
     Dosage: 40MG DAILY
     Route: 058
  5. SENIKOT [Concomitant]
  6. BENZTROPINE. [Concomitant]
     Active Substance: BENZTROPINE
  7. FINASTERIDE. [Concomitant]
     Active Substance: FINASTERIDE
  8. VITAMIN B12 [Concomitant]
     Active Substance: CYANOCOBALAMIN
  9. FOLIC ACID. [Concomitant]
     Active Substance: FOLIC ACID
  10. CLOZARIL [Suspect]
     Active Substance: CLOZAPINE
     Indication: SCHIZOPHRENIA
     Dosage: 125 MG BID AND 150MG QHS
     Route: 048
     Dates: start: 20140109

REACTIONS (20)
  - Hallucination [Unknown]
  - Blood creatinine increased [Unknown]
  - Extraocular muscle disorder [Unknown]
  - Blood sodium decreased [Unknown]
  - Fall [Unknown]
  - Blood albumin decreased [Unknown]
  - Blood calcium decreased [Unknown]
  - Blood thyroid stimulating hormone increased [Unknown]
  - White blood cell count increased [Recovered/Resolved]
  - Neutrophil count decreased [Recovered/Resolved]
  - Blood chloride increased [Unknown]
  - Blood phosphorus decreased [Unknown]
  - Lipase abnormal [Unknown]
  - Calcium ionised decreased [Unknown]
  - Troponin T increased [Unknown]
  - Nystagmus [Unknown]
  - Tremor [Unknown]
  - Glomerular filtration rate decreased [Unknown]
  - Mean cell volume decreased [Recovered/Resolved]
  - Myoclonus [Recovering/Resolving]

NARRATIVE: CASE EVENT DATE: 20190629
